FAERS Safety Report 7214783-9 (Version None)
Quarter: 2011Q1

REPORT INFORMATION
  Report Type: 
  Country: None (occurrence: None)
  Receive Date: 20110107
  Receipt Date: 20100215
  Transmission Date: 20110831
  Serious: No
  Sender: FDA-Public Use
  Company Number: A0844501A

PATIENT
  Sex: Male

DRUGS (1)
  1. LOVAZA [Suspect]
     Dosage: 4CAP PER DAY
     Route: 048
     Dates: start: 20090801, end: 20100201

REACTIONS (2)
  - DYSGEUSIA [None]
  - ABDOMINAL DISCOMFORT [None]
